FAERS Safety Report 18481781 (Version 5)
Quarter: 2023Q1

REPORT INFORMATION
  Report Type: Spontaneous
  Country: US (occurrence: US)
  Receive Date: 20201109
  Receipt Date: 20230208
  Transmission Date: 20230417
  Serious: No
  Sender: FDA-Public Use
  Company Number: US-PFIZER INC-2020431544

PATIENT
  Age: 58 Year
  Sex: Female

DRUGS (3)
  1. XELJANZ [Suspect]
     Active Substance: TOFACITINIB CITRATE
     Indication: Gastroenteritis
     Dosage: 5 MG, 2X/DAY
  2. XELJANZ [Suspect]
     Active Substance: TOFACITINIB CITRATE
     Indication: Colitis
     Dosage: 10 MG, 2X/DAY
  3. MESALAMINE [Concomitant]
     Active Substance: MESALAMINE
     Indication: Proctitis
     Dosage: UNK
     Route: 054

REACTIONS (4)
  - Drug ineffective [Unknown]
  - Off label use [Unknown]
  - Memory impairment [Unknown]
  - Seasonal allergy [Unknown]
